FAERS Safety Report 18970594 (Version 1)
Quarter: 2021Q1

REPORT INFORMATION
  Report Type: Spontaneous
  Country: US (occurrence: US)
  Receive Date: 20210305
  Receipt Date: 20210305
  Transmission Date: 20210420
  Serious: Yes (Death, Life-Threatening, Hospitalization, Other)
  Sender: FDA-Public Use
  Company Number: US-AUROBINDO-AUR-APL-2021-008689

PATIENT
  Age: 13 Month
  Sex: Female

DRUGS (3)
  1. METHYLPREDNISOLONE. [Suspect]
     Active Substance: METHYLPREDNISOLONE
     Dosage: UNK (UP TO 80 MG/DAY)
     Route: 065
  2. METHYLPREDNISOLONE. [Suspect]
     Active Substance: METHYLPREDNISOLONE
     Indication: AUTOIMMUNE HAEMOLYTIC ANAEMIA
     Dosage: 80 MILLIGRAM, ONCE A DAY
     Route: 065
  3. IMMUNOGLOBULIN [Concomitant]
     Indication: AUTOIMMUNE HAEMOLYTIC ANAEMIA
     Dosage: UNK
     Route: 042

REACTIONS (11)
  - Mumps [Fatal]
  - Disseminated intravascular coagulation [Fatal]
  - Renal failure [Fatal]
  - Disseminated varicella zoster vaccine virus infection [Fatal]
  - Lymphopenia [Fatal]
  - Varicella zoster virus infection [Fatal]
  - Rubella [Fatal]
  - Hepatic infection [Fatal]
  - Hepatic failure [Fatal]
  - Herpes virus infection [Fatal]
  - Pneumonia [Fatal]
